FAERS Safety Report 11520320 (Version 1)
Quarter: 2015Q3

REPORT INFORMATION
  Report Type: Spontaneous
  Country: US (occurrence: US)
  Receive Date: 20150918
  Receipt Date: 20150918
  Transmission Date: 20151125
  Serious: No
  Sender: FDA-Public Use
  Company Number: US-RB-076248-15

PATIENT

DRUGS (1)
  1. MUCINEX MAXIMUM STRENGTH [Suspect]
     Active Substance: GUAIFENESIN
     Indication: PRODUCT USED FOR UNKNOWN INDICATION
     Dosage: 1200MG. FREQUENCY OF USE:1 TABLET PER DOSE; AMOUNT USED:11 TABLETS; PRODUCT WAS LAST USED ON 21-JAN-
     Route: 065
     Dates: start: 20150116

REACTIONS (2)
  - Incorrect drug administration duration [Not Recovered/Not Resolved]
  - Hypertension [Not Recovered/Not Resolved]
